FAERS Safety Report 10209221 (Version 1)
Quarter: 2014Q2

REPORT INFORMATION
  Report Type: Report from Study
  Country: US (occurrence: US)
  Receive Date: 20140530
  Receipt Date: 20140530
  Transmission Date: 20141212
  Serious: Yes (Other)
  Sender: FDA-Public Use
  Company Number: US-GILEAD-2014-0103850

PATIENT
  Age: 54 Year
  Sex: Male

DRUGS (2)
  1. SOFOSBUVIR [Suspect]
     Indication: CHRONIC HEPATITIS C
     Dosage: 400 MG, UNK
     Route: 065
  2. SIMEPREVIR [Concomitant]

REACTIONS (4)
  - Convulsion [Unknown]
  - Coma [Recovered/Resolved]
  - Confusional state [Unknown]
  - Muscle twitching [Unknown]
